FAERS Safety Report 6913497-X (Version None)
Quarter: 2010Q3

REPORT INFORMATION
  Report Type: 
  Country: None (occurrence: None)
  Receive Date: 20100809
  Receipt Date: 20100803
  Transmission Date: 20110219
  Serious: Yes (Hospitalization, Other)
  Sender: FDA-Public Use
  Company Number: US-ASTRAZENECA-2007UW11903

PATIENT
  Age: 45 Year
  Sex: Female
  Weight: 111.1 kg

DRUGS (8)
  1. SEROQUEL [Suspect]
     Indication: ANXIETY
     Route: 048
     Dates: start: 20011101
  2. SEROQUEL [Suspect]
     Indication: OBSESSIVE-COMPULSIVE DISORDER
     Route: 048
     Dates: start: 20011101
  3. SEROQUEL [Suspect]
     Indication: DEPRESSION
     Route: 048
     Dates: start: 20011101
  4. ACTOS [Concomitant]
     Indication: DIABETES MELLITUS
     Route: 048
     Dates: start: 20060106
  5. ATIVAN [Concomitant]
     Indication: OBSESSIVE-COMPULSIVE DISORDER
     Dosage: 0.5 MG TO 1 MG
     Route: 048
     Dates: start: 20020115
  6. ATIVAN [Concomitant]
     Indication: ANXIETY
     Dosage: 0.5 MG TO 1 MG
     Route: 048
     Dates: start: 20020115
  7. ZANTAC [Concomitant]
     Route: 048
     Dates: start: 19861111
  8. ULTRAM [Concomitant]
     Indication: PAIN
     Route: 048
     Dates: start: 19990731

REACTIONS (58)
  - ABDOMINAL PAIN [None]
  - ANKLE FRACTURE [None]
  - ARTHRALGIA [None]
  - ASTHENIA [None]
  - BACK PAIN [None]
  - BACTERIAL INFECTION [None]
  - BLOOD GLUCOSE DECREASED [None]
  - BODY TINEA [None]
  - CELLULITIS [None]
  - CHEST PAIN [None]
  - CHOLELITHIASIS [None]
  - CONSTIPATION [None]
  - DEHYDRATION [None]
  - DIABETIC NEUROPATHY [None]
  - DIABETIC RETINOPATHY [None]
  - DIARRHOEA [None]
  - DIVERTICULUM [None]
  - ERYTHEMA [None]
  - EXCORIATION [None]
  - FAECAL INCONTINENCE [None]
  - FALL [None]
  - FLATULENCE [None]
  - GALLBLADDER DISORDER [None]
  - GASTRIC ULCER [None]
  - GASTROOESOPHAGEAL REFLUX DISEASE [None]
  - HAEMORRHOIDS [None]
  - HIATUS HERNIA [None]
  - HYPERCHOLESTEROLAEMIA [None]
  - HYPOAESTHESIA [None]
  - HYPOGLYCAEMIA [None]
  - HYPOTENSION [None]
  - HYPOVITAMINOSIS [None]
  - IMPETIGO [None]
  - INCONTINENCE [None]
  - INFLUENZA [None]
  - INFLUENZA LIKE ILLNESS [None]
  - JOINT SPRAIN [None]
  - JOINT SWELLING [None]
  - LOSS OF CONSCIOUSNESS [None]
  - LYMPHOEDEMA [None]
  - NAUSEA [None]
  - NECK PAIN [None]
  - OEDEMA [None]
  - OEDEMA PERIPHERAL [None]
  - PAIN IN EXTREMITY [None]
  - PHYSICAL ASSAULT [None]
  - POSTMENOPAUSE [None]
  - PYREXIA [None]
  - RASH [None]
  - RECTAL HAEMORRHAGE [None]
  - ROAD TRAFFIC ACCIDENT [None]
  - SINUSITIS [None]
  - SKIN ULCER [None]
  - SYNCOPE [None]
  - TYPE 2 DIABETES MELLITUS [None]
  - ULCER [None]
  - VENOUS INSUFFICIENCY [None]
  - VOMITING [None]
